FAERS Safety Report 14604035 (Version 2)
Quarter: 2018Q1

REPORT INFORMATION
  Report Type: Spontaneous
  Country: HU (occurrence: HU)
  Receive Date: 20180306
  Receipt Date: 20180316
  Transmission Date: 20180509
  Serious: Yes (Other)
  Sender: FDA-Public Use
  Company Number: HU-PFIZER INC-2018084400

PATIENT
  Age: 70 Year
  Sex: Female

DRUGS (3)
  1. PRETANIX KOMB [Concomitant]
     Dosage: UNK
  2. RYTMONORM [Concomitant]
     Active Substance: PROPAFENONE
     Dosage: 150 MG (2X2)
  3. CARDURA [Suspect]
     Active Substance: DOXAZOSIN MESYLATE
     Indication: HYPERTENSION
     Dosage: 4 MG, TWICE A DAY
     Dates: start: 201712

REACTIONS (2)
  - Arrhythmia [Recovered/Resolved]
  - Condition aggravated [Recovered/Resolved]

NARRATIVE: CASE EVENT DATE: 201712
